FAERS Safety Report 21907709 (Version 2)
Quarter: 2023Q1

REPORT INFORMATION
  Report Type: Spontaneous
  Country: US (occurrence: US)
  Receive Date: 20230125
  Receipt Date: 20230208
  Transmission Date: 20230417
  Serious: Yes (Death, Hospitalization, Other)
  Sender: FDA-Public Use
  Company Number: US-drreddys-SPO/USA/23/0160303

PATIENT
  Age: 40 Year
  Sex: Male

DRUGS (1)
  1. CLOPIDOGREL [Suspect]
     Active Substance: CLOPIDOGREL BISULFATE
     Indication: Thrombosis
     Dates: start: 20221021, end: 20221021

REACTIONS (5)
  - Death [Fatal]
  - Cerebrovascular accident [Unknown]
  - Cardiac arrest [Unknown]
  - Cerebral haemorrhage [Unknown]
  - Product use in unapproved indication [Unknown]
